FAERS Safety Report 14895955 (Version 3)
Quarter: 2018Q3

REPORT INFORMATION
  Report Type: Spontaneous
  Country: US (occurrence: US)
  Receive Date: 20180515
  Receipt Date: 20180705
  Transmission Date: 20181010
  Serious: Yes (Other)
  Sender: FDA-Public Use
  Company Number: US-UNITED THERAPEUTICS-UNT-2017-018196

PATIENT
  Sex: Female
  Weight: 81.63 kg

DRUGS (28)
  1. ORENITRAM [Suspect]
     Active Substance: TREPROSTINIL
     Dosage: 2.5 MG, UNK
     Route: 048
  2. ORENITRAM [Suspect]
     Active Substance: TREPROSTINIL
     Dosage: UNK
     Route: 048
  3. ORENITRAM [Suspect]
     Active Substance: TREPROSTINIL
     Indication: PULMONARY HYPERTENSION
     Dosage: UNK
     Route: 048
  4. ORENITRAM [Suspect]
     Active Substance: TREPROSTINIL
     Dosage: UNK
     Route: 048
  5. LETAIRIS [Suspect]
     Active Substance: AMBRISENTAN
     Dosage: UNK
     Route: 065
  6. LETAIRIS [Suspect]
     Active Substance: AMBRISENTAN
     Dosage: UNK
     Route: 065
  7. ORENITRAM [Suspect]
     Active Substance: TREPROSTINIL
     Dosage: 2MG QD AND 2.25 MG BID
     Route: 048
  8. ORENITRAM [Suspect]
     Active Substance: TREPROSTINIL
     Dosage: UNK
     Route: 048
  9. ORENITRAM [Suspect]
     Active Substance: TREPROSTINIL
     Indication: PULMONARY ARTERIAL HYPERTENSION
     Dosage: 1.5  MG QAM, 1.75 MG NOON AND QPM, TID
     Route: 048
     Dates: start: 20140902
  10. ORENITRAM [Suspect]
     Active Substance: TREPROSTINIL
     Indication: PULMONARY ARTERIAL HYPERTENSION
     Dosage: 1.5 MG QAM, 1.75 MG NOON AND QPM, TID
     Route: 048
     Dates: start: 20140902
  11. ORENITRAM [Suspect]
     Active Substance: TREPROSTINIL
     Dosage: 2.5 MG, UNK
     Route: 048
  12. LETAIRIS [Suspect]
     Active Substance: AMBRISENTAN
     Indication: PRODUCT USED FOR UNKNOWN INDICATION
     Dosage: 10 MG, QD
     Route: 065
     Dates: start: 20130207
  13. LETAIRIS [Suspect]
     Active Substance: AMBRISENTAN
     Dosage: UNK
     Route: 065
  14. ADCIRCA [Concomitant]
     Active Substance: TADALAFIL
     Indication: PRODUCT USED FOR UNKNOWN INDICATION
     Route: 065
  15. ORENITRAM [Suspect]
     Active Substance: TREPROSTINIL
     Dosage: 2.25 MG QD AND 2.5 MG BID
     Route: 048
  16. ORENITRAM [Suspect]
     Active Substance: TREPROSTINIL
     Dosage: UNK
     Route: 048
  17. ORENITRAM [Suspect]
     Active Substance: TREPROSTINIL
     Dosage: 2MG QD AND 2.25 MG BID
     Route: 048
  18. ORENITRAM [Suspect]
     Active Substance: TREPROSTINIL
     Dosage: 2MG QD AND 2.25 MG BID
     Route: 048
  19. ORENITRAM [Suspect]
     Active Substance: TREPROSTINIL
     Indication: PULMONARY HYPERTENSION
     Dosage: UNK
     Route: 048
  20. ORENITRAM [Suspect]
     Active Substance: TREPROSTINIL
     Dosage: 2MG QD AND 2.25 MG BID
     Route: 048
  21. ORENITRAM [Suspect]
     Active Substance: TREPROSTINIL
     Dosage: UNK
     Route: 048
  22. ORENITRAM [Suspect]
     Active Substance: TREPROSTINIL
     Dosage: UNK
     Route: 048
  23. AMLODIPINE [Concomitant]
     Active Substance: AMLODIPINE BESYLATE
     Indication: PRODUCT USED FOR UNKNOWN INDICATION
     Route: 065
  24. ORENITRAM [Suspect]
     Active Substance: TREPROSTINIL
     Indication: PULMONARY ARTERIAL HYPERTENSION
     Dosage: 1.5 MG QAM, 1.75 MG NOON AND QPM TID
     Route: 048
     Dates: start: 20140902
  25. ORENITRAM [Suspect]
     Active Substance: TREPROSTINIL
     Indication: PULMONARY HYPERTENSION
     Dosage: UNK
     Route: 048
  26. ORENITRAM [Suspect]
     Active Substance: TREPROSTINIL
     Dosage: 2.5 MG, TID
     Route: 048
  27. ORENITRAM [Suspect]
     Active Substance: TREPROSTINIL
     Dosage: 2.25 MG QD AND 2.5 MG BID
     Route: 048
  28. NIFEDIPINE. [Concomitant]
     Active Substance: NIFEDIPINE
     Indication: PRODUCT USED FOR UNKNOWN INDICATION
     Route: 065

REACTIONS (12)
  - Dizziness [Unknown]
  - Malaise [Unknown]
  - Off label use [Unknown]
  - Oesophageal discomfort [Unknown]
  - Chest discomfort [Unknown]
  - Throat irritation [Not Recovered/Not Resolved]
  - Pain in jaw [Not Recovered/Not Resolved]
  - Atrial tachycardia [Not Recovered/Not Resolved]
  - Dyspepsia [Unknown]
  - Headache [Recovering/Resolving]
  - Flushing [Not Recovered/Not Resolved]
  - Ventricular extrasystoles [Unknown]
